FAERS Safety Report 8572479-5 (Version None)
Quarter: 2012Q3

REPORT INFORMATION
  Report Type: 
  Country: None (occurrence: None)
  Receive Date: 20120806
  Receipt Date: 20120723
  Transmission Date: 20120928
  Serious: Yes (Hospitalization)
  Sender: FDA-Public Use
  Company Number: US-DX529-2012DX000161

PATIENT
  Age: 46 Year
  Sex: Female
  Weight: 77.11 kg

DRUGS (36)
  1. PHENERGAN [Concomitant]
     Indication: MOTION SICKNESS
  2. CINRYZE [Concomitant]
     Indication: HEREDITARY ANGIOEDEMA
     Route: 048
  3. ASMANEX TWISTHALER [Concomitant]
     Indication: PRODUCT USED FOR UNKNOWN INDICATION
     Dosage: DOSE UNIT:440 MCG
  4. DILAUDID [Concomitant]
     Indication: PRODUCT USED FOR UNKNOWN INDICATION
  5. ZOFRAN [Concomitant]
     Indication: VOMITING
  6. TYLENOL (CAPLET) [Concomitant]
     Indication: PRODUCT USED FOR UNKNOWN INDICATION
  7. METAMUCIL /00029101/ [Concomitant]
     Indication: PRODUCT USED FOR UNKNOWN INDICATION
  8. ENEMA /01318702/ [Concomitant]
     Indication: PRODUCT USED FOR UNKNOWN INDICATION
  9. KALBITOR [Suspect]
     Indication: HEREDITARY ANGIOEDEMA
     Route: 058
     Dates: start: 20120707, end: 20120707
  10. PREDNISONE TAB [Suspect]
     Indication: PRODUCT USED FOR UNKNOWN INDICATION
  11. DILANTIN [Concomitant]
     Indication: CONVULSION
  12. DILANTIN [Concomitant]
  13. OXYCODONE HCL [Concomitant]
     Indication: PAIN
  14. IBUPROFEN [Concomitant]
     Indication: PRODUCT USED FOR UNKNOWN INDICATION
  15. MIRALAX /00754501/ [Concomitant]
     Indication: PRODUCT USED FOR UNKNOWN INDICATION
  16. FERROUS GLUCONATE [Concomitant]
     Indication: PRODUCT USED FOR UNKNOWN INDICATION
  17. FIORICET [Concomitant]
     Indication: HEADACHE
  18. LIPITOR [Concomitant]
     Indication: PRODUCT USED FOR UNKNOWN INDICATION
  19. PREVACID [Concomitant]
     Indication: PRODUCT USED FOR UNKNOWN INDICATION
     Route: 048
  20. COLACE [Concomitant]
     Indication: PRODUCT USED FOR UNKNOWN INDICATION
  21. DULCOLAX [Concomitant]
     Indication: PRODUCT USED FOR UNKNOWN INDICATION
  22. EPIPEN [Concomitant]
     Indication: PRODUCT USED FOR UNKNOWN INDICATION
  23. ATENOLOL [Concomitant]
     Indication: PRODUCT USED FOR UNKNOWN INDICATION
  24. FOSAMAX [Concomitant]
     Indication: PRODUCT USED FOR UNKNOWN INDICATION
  25. PROBIOTICS [Concomitant]
     Indication: PRODUCT USED FOR UNKNOWN INDICATION
  26. DIPHENHYDRAMINE HCL [Concomitant]
     Indication: PRODUCT USED FOR UNKNOWN INDICATION
  27. NASONEX [Concomitant]
  28. NORTRIPTYLINE HCL [Concomitant]
     Indication: SLEEP DISORDER
     Route: 048
  29. TRAZODONE HYDROCHLORIDE [Concomitant]
     Indication: PRODUCT USED FOR UNKNOWN INDICATION
  30. MAGNESIUM CITRATE [Concomitant]
     Indication: PRODUCT USED FOR UNKNOWN INDICATION
  31. ZOFRAN [Concomitant]
     Indication: NAUSEA
  32. SOMA [Concomitant]
     Indication: BACK PAIN
  33. COUMADIN [Suspect]
     Indication: ANTICOAGULANT THERAPY
     Dates: start: 20110101
  34. DANAZOL [Concomitant]
     Indication: HEREDITARY ANGIOEDEMA
     Route: 048
  35. ALBUTEROL [Concomitant]
     Indication: WHEEZING
  36. SPIRIVA [Concomitant]
     Indication: PRODUCT USED FOR UNKNOWN INDICATION

REACTIONS (17)
  - BLOOD GLUCOSE INCREASED [None]
  - PROTEIN TOTAL DECREASED [None]
  - TOXICITY TO VARIOUS AGENTS [None]
  - BACK PAIN [None]
  - ANAEMIA [None]
  - BLOOD CALCIUM DECREASED [None]
  - BLOOD UREA DECREASED [None]
  - HEREDITARY ANGIOEDEMA [None]
  - INTERVERTEBRAL DISC DEGENERATION [None]
  - PNEUMONIA [None]
  - HEAD INJURY [None]
  - BLOOD ALBUMIN DECREASED [None]
  - ABDOMINAL PAIN [None]
  - INCREASED TENDENCY TO BRUISE [None]
  - THYROID NEOPLASM [None]
  - CHEST DISCOMFORT [None]
  - BLOOD SODIUM DECREASED [None]
